FAERS Safety Report 11705187 (Version 10)
Quarter: 2018Q4

REPORT INFORMATION
  Report Type: Spontaneous
  Country: US (occurrence: US)
  Receive Date: 20151106
  Receipt Date: 20181017
  Transmission Date: 20190204
  Serious: No
  Sender: FDA-Public Use
  Company Number: US-009507513-1511USA003030

PATIENT
  Sex: Female

DRUGS (1)
  1. IMPLANON [Suspect]
     Active Substance: ETONOGESTREL
     Indication: CONTRACEPTION
     Dosage: 68 MG, 1 ROD EVERY 3 YEARS
     Route: 059
     Dates: start: 20120626, end: 20170825

REACTIONS (10)
  - Complication associated with device [Recovered/Resolved]
  - Weight increased [Unknown]
  - Migraine [Unknown]
  - Neck pain [Unknown]
  - Implant site scar [Unknown]
  - Complication of device removal [Recovered/Resolved]
  - Complication of device removal [Recovered/Resolved]
  - Complication of device removal [Recovered/Resolved]
  - Complication of device removal [Recovered/Resolved]
  - Incorrect product administration duration [Recovered/Resolved]

NARRATIVE: CASE EVENT DATE: 2012
